FAERS Safety Report 13758694 (Version 2)
Quarter: 2017Q3

REPORT INFORMATION
  Report Type: Spontaneous
  Country: BR (occurrence: BR)
  Receive Date: 20170717
  Receipt Date: 20170801
  Transmission Date: 20171127
  Serious: Yes (Death, Hospitalization, Congenital Anomaly, Other)
  Sender: FDA-Public Use
  Company Number: BR-ALEMBIC PHARMACUETICALS LIMITED-2017SCAL000590

PATIENT

DRUGS (1)
  1. LOSARTAN POTASSIUM. [Suspect]
     Active Substance: LOSARTAN POTASSIUM
     Indication: PRODUCT USED FOR UNKNOWN INDICATION
     Dosage: UNK
     Route: 064

REACTIONS (8)
  - Kidney malformation [Unknown]
  - Delayed fontanelle closure [Unknown]
  - Congenital cardiovascular anomaly [Unknown]
  - Cerebral ischaemia [Unknown]
  - Central nervous system haemorrhage [Unknown]
  - Pulmonary haemorrhage [Unknown]
  - Foetal exposure during pregnancy [Unknown]
  - Cardiac arrest [Fatal]
